FAERS Safety Report 24426156 (Version 3)
Quarter: 2024Q4

REPORT INFORMATION
  Report Type: Spontaneous
  Country: JP (occurrence: JP)
  Receive Date: 20241011
  Receipt Date: 20241029
  Transmission Date: 20250114
  Serious: Yes (Other)
  Sender: JOHNSON AND JOHNSON
  Company Number: JP-JNJFOC-20241034073

PATIENT

DRUGS (2)
  1. INVEGA [Suspect]
     Active Substance: PALIPERIDONE
     Indication: Schizophrenia
     Dosage: DOSE UNKNOWN
     Route: 048
  2. RISPERIDONE [Concomitant]
     Active Substance: RISPERIDONE
     Indication: Schizophrenia
     Dosage: DOSE UNKNOWN
     Route: 065

REACTIONS (1)
  - Renal impairment [Unknown]
